FAERS Safety Report 4424422-8 (Version None)
Quarter: 2004Q3

REPORT INFORMATION
  Report Type: 
  Country: None (occurrence: None)
  Receive Date: 20040719
  Receipt Date: 20040105
  Transmission Date: 20050211
  Serious: Yes (Hospitalization)
  Sender: FDA-Public Use
  Company Number: 190075

PATIENT
  Age: 56 Year
  Sex: Female
  Weight: 42.6381 kg

DRUGS (6)
  1. AVONEX [Suspect]
     Indication: MULTIPLE SCLEROSIS
     Dosage: 30 MCG QW IM
     Route: 030
     Dates: start: 19960101
  2. AVONEX [Suspect]
     Indication: MULTIPLE SCLEROSIS
     Dosage: 30 MCG QW IM
     Route: 030
     Dates: start: 20000101, end: 20031001
  3. AVONEX [Suspect]
     Indication: MULTIPLE SCLEROSIS
     Dosage: 30 MCG QW IM
     Route: 030
     Dates: start: 20031001
  4. MEDICATION NOS [Concomitant]
  5. DANTRIUM [Concomitant]
  6. MULTIVITAMIN [Concomitant]

REACTIONS (9)
  - DEPRESSION [None]
  - DRY MOUTH [None]
  - JOINT STIFFNESS [None]
  - LIP DRY [None]
  - MULTIPLE SCLEROSIS RELAPSE [None]
  - MUSCLE SPASMS [None]
  - MUSCULOSKELETAL STIFFNESS [None]
  - SENSATION OF HEAVINESS [None]
  - WEIGHT DECREASED [None]
